FAERS Safety Report 6322665-X (Version None)
Quarter: 2009Q3

REPORT INFORMATION
  Report Type: 
  Country: None (occurrence: None)
  Receive Date: 20090821
  Receipt Date: 20090821
  Transmission Date: 20100115
  Serious: Yes (Other)
  Sender: FDA-Public Use
  Company Number: None

PATIENT
  Sex: Male
  Weight: 96.1626 kg

DRUGS (1)
  1. FENTANYL-75 [Suspect]
     Indication: PAIN
     Dosage: 75MCGHR Q72HRS TRANSDERMAL
     Route: 062
     Dates: start: 20090817, end: 20090817

REACTIONS (5)
  - CONDITION AGGRAVATED [None]
  - DEVICE LEAKAGE [None]
  - HYPERHIDROSIS [None]
  - PAIN [None]
  - PRODUCT QUALITY ISSUE [None]
